FAERS Safety Report 25917029 (Version 1)
Quarter: 2025Q4

REPORT INFORMATION
  Report Type: Report from Study
  Country: GB (occurrence: GB)
  Receive Date: 20251014
  Receipt Date: 20251014
  Transmission Date: 20260118
  Serious: Yes (Hospitalization, Other)
  Sender: ABBVIE
  Company Number: GB-ABBVIE-6501056

PATIENT
  Age: 78 Year
  Sex: Male

DRUGS (3)
  1. SKYRIZI [Suspect]
     Active Substance: RISANKIZUMAB-RZAA
     Indication: Crohn^s disease
     Dosage: STRENGTH 360MG/2.4ML?DOSE FORM: SOLUTION FOR INJECTION IN CARTRIDGE?LAST ADMIN DATE: 2025
     Route: 058
     Dates: start: 20250416
  2. SKYRIZI [Suspect]
     Active Substance: RISANKIZUMAB-RZAA
     Dosage: STRENGTH 360MG/2.4ML?DOSE FORM: SOLUTION FOR INJECTION IN CARTRIDGE
     Route: 058
     Dates: start: 20250925
  3. SKYRIZI [Suspect]
     Active Substance: RISANKIZUMAB-RZAA
     Indication: Crohn^s disease
     Dosage: STOP DATE 2025?THREE INFUSIONS?DOSE FORM: SOLUTION FOR INFUSION
     Route: 042
     Dates: start: 202501

REACTIONS (1)
  - Illness [Unknown]

NARRATIVE: CASE EVENT DATE: 20250701
